FAERS Safety Report 5213154-4 (Version None)
Quarter: 2007Q1

REPORT INFORMATION
  Report Type: 
  Country: None (occurrence: None)
  Receive Date: 20070119
  Receipt Date: 20070111
  Transmission Date: 20070707
  Serious: Yes (Other)
  Sender: FDA-Public Use
  Company Number: GB-GLAXOSMITHKLINE-B0454603A

PATIENT
  Sex: Male

DRUGS (1)
  1. NICORETTE [Suspect]
     Route: 065

REACTIONS (1)
  - DEPENDENCE [None]
